FAERS Safety Report 16054371 (Version 1)
Quarter: 2019Q1

REPORT INFORMATION
  Report Type: Report from Study
  Country: US (occurrence: US)
  Receive Date: 20190309
  Receipt Date: 20190309
  Transmission Date: 20190418
  Serious: Yes (Other)
  Sender: FDA-Public Use
  Company Number: US-ROCHE-2279766

PATIENT
  Age: 14 Year
  Sex: Male
  Weight: 37.4 kg

DRUGS (8)
  1. NUTROPIN AQ [Suspect]
     Active Substance: SOMATROPIN
     Indication: GROWTH HORMONE DEFICIENCY
     Dosage: 1.8 MG QD
     Route: 058
     Dates: start: 201806
  2. TESTOSTERONE. [Concomitant]
     Active Substance: TESTOSTERONE
  3. NUTROPIN AQ [Suspect]
     Active Substance: SOMATROPIN
     Route: 058
     Dates: start: 20181004
  4. ACETAMINOPHEN/HYDROCODONE [Concomitant]
     Active Substance: ACETAMINOPHEN\HYDROCODONE
     Dosage: 325-5 MG
     Route: 048
     Dates: start: 20180914
  5. PERIACTIN [Concomitant]
     Active Substance: CYPROHEPTADINE HYDROCHLORIDE
     Route: 048
     Dates: start: 20171228
  6. NUTROPIN AQ [Suspect]
     Active Substance: SOMATROPIN
     Route: 058
  7. ZOLOFT [Concomitant]
     Active Substance: SERTRALINE HYDROCHLORIDE
     Route: 065
     Dates: start: 20170817
  8. ESCITALOPRAM [Concomitant]
     Active Substance: ESCITALOPRAM OXALATE
     Route: 048
     Dates: start: 20160912

REACTIONS (2)
  - Upper limb fracture [Unknown]
  - Goitre [Unknown]

NARRATIVE: CASE EVENT DATE: 20180913
